FAERS Safety Report 16334675 (Version 1)
Quarter: 2019Q2

REPORT INFORMATION
  Report Type: Report from Study
  Country: BR (occurrence: BR)
  Receive Date: 20190520
  Receipt Date: 20190520
  Transmission Date: 20190711
  Serious: Yes (Other)
  Sender: FDA-Public Use
  Company Number: BR-GILEAD-2019-0408752

PATIENT

DRUGS (5)
  1. PEGYLATED INTERFERON ALPHA NOS [Concomitant]
     Active Substance: PEGINTERFERON ALFA-2A OR PEGINTERFERON ALFA-2B
  2. RIBAVIRIN. [Concomitant]
     Active Substance: RIBAVIRIN
  3. SOFOSBUVIR [Suspect]
     Active Substance: SOFOSBUVIR
     Indication: CHRONIC HEPATITIS C
     Dosage: UNK
     Route: 065
  4. DACLATASVIR. [Concomitant]
     Active Substance: DACLATASVIR
  5. SIMEPREVIR [Concomitant]
     Active Substance: SIMEPREVIR

REACTIONS (1)
  - Acute kidney injury [Unknown]
